FAERS Safety Report 18663472 (Version 1)
Quarter: 2020Q4

REPORT INFORMATION
  Report Type: Spontaneous
  Country: US (occurrence: US)
  Receive Date: 20201224
  Receipt Date: 20201224
  Transmission Date: 20210114
  Serious: Yes (Death, Hospitalization, Other)
  Sender: FDA-Public Use
  Company Number: US-B.I. PHARMACEUTICALS,INC./RIDGEFIELD-2020-BI-071842

PATIENT
  Age: 85 Year
  Sex: Male

DRUGS (3)
  1. ADVAIR HFA [Concomitant]
     Active Substance: FLUTICASONE PROPIONATE\SALMETEROL XINAFOATE
     Indication: PRODUCT USED FOR UNKNOWN INDICATION
  2. ATROVENT [Suspect]
     Active Substance: IPRATROPIUM BROMIDE
     Dosage: TOO OFTEN EVERY DAY FOR ABOUT A WEEK WHILE SHORT OF BREATH
     Dates: start: 202011, end: 202012
  3. ATROVENT [Suspect]
     Active Substance: IPRATROPIUM BROMIDE
     Indication: CHRONIC OBSTRUCTIVE PULMONARY DISEASE
     Dosage: 2 INHALATIONS 4 TIMES A DAY
     Dates: end: 202011

REACTIONS (5)
  - Myocardial infarction [Fatal]
  - Dyspnoea [Fatal]
  - Product quality issue [Unknown]
  - Arrhythmia [Fatal]
  - Extra dose administered [Unknown]

NARRATIVE: CASE EVENT DATE: 202011
